FAERS Safety Report 20683051 (Version 3)
Quarter: 2022Q2

REPORT INFORMATION
  Report Type: Spontaneous
  Country: US (occurrence: US)
  Receive Date: 20220407
  Receipt Date: 20220506
  Transmission Date: 20220721
  Serious: Yes (Hospitalization)
  Sender: FDA-Public Use
  Company Number: US-BRISTOL-MYERS SQUIBB COMPANY-2022-014582

PATIENT
  Age: 73 Year
  Sex: Male

DRUGS (2)
  1. REVLIMID [Suspect]
     Active Substance: LENALIDOMIDE
     Indication: Plasma cell myeloma
     Dosage: DOSE : 25MG;     FREQ : 14 DAYS ON 7 DAY OFF
     Route: 048
     Dates: start: 20220224
  2. REVLIMID [Suspect]
     Active Substance: LENALIDOMIDE
     Dosage: FREQ : 14 DAYS ON 7 DAY OFF
     Route: 048
     Dates: start: 20220221

REACTIONS (3)
  - Localised infection [Unknown]
  - Oedema peripheral [Unknown]
  - Off label use [Unknown]
